FAERS Safety Report 5873280-3 (Version None)
Quarter: 2008Q3

REPORT INFORMATION
  Report Type: 
  Country: None (occurrence: None)
  Receive Date: 20080829
  Receipt Date: 20080821
  Transmission Date: 20090109
  Serious: Yes (Hospitalization)
  Sender: FDA-Public Use
  Company Number: 2008BI021529

PATIENT
  Age: 32 Year
  Sex: Male
  Weight: 59 kg

DRUGS (4)
  1. TYSABRI [Suspect]
     Indication: MULTIPLE SCLEROSIS
     Dosage: 300 MG;QM;IV
     Route: 042
     Dates: start: 20080306, end: 20080711
  2. BETASERON [Concomitant]
  3. CHRONIC SYSTEMIC STEROIDS [Concomitant]
  4. IMMUNE GLOBULIN INTRAVENOUS (HUMAN) [Concomitant]

REACTIONS (4)
  - ANOREXIA [None]
  - HYPERTHERMIA [None]
  - PLEURAL EFFUSION [None]
  - TUBERCULOUS PLEURISY [None]
